FAERS Safety Report 9605272 (Version 3)
Quarter: 2014Q2

REPORT INFORMATION
  Report Type: Spontaneous
  Country: DK (occurrence: DK)
  Receive Date: 20131008
  Receipt Date: 20140522
  Transmission Date: 20141212
  Serious: Yes (Death)
  Sender: FDA-Public Use
  Company Number: DK-GLAXOSMITHKLINE-B0928364A

PATIENT
  Age: 1 Year
  Sex: Female
  Weight: 9 kg

DRUGS (12)
  1. BACTRIM [Suspect]
     Indication: COMBINED IMMUNODEFICIENCY
     Route: 048
     Dates: start: 201302
  2. ZOVIR [Suspect]
     Indication: COMBINED IMMUNODEFICIENCY
     Dosage: 2.5ML TWICE PER DAY
     Route: 048
     Dates: start: 201302
  3. BIKLIN [Suspect]
     Indication: DISSEMINATED TUBERCULOSIS
     Dosage: 175MG PER DAY
     Route: 042
     Dates: start: 20130524
  4. AVELOX [Suspect]
     Indication: DISSEMINATED TUBERCULOSIS
     Dosage: 90MG PER DAY
     Route: 042
     Dates: start: 20130524
  5. EREMFAT [Suspect]
     Indication: DISSEMINATED TUBERCULOSIS
     Dosage: 175MG PER DAY
     Route: 042
     Dates: start: 20130524
  6. ISONIAZID [Suspect]
     Indication: DISSEMINATED TUBERCULOSIS
     Dosage: 135MG PER DAY
     Route: 042
     Dates: start: 20130524
  7. MYAMBUTOL [Suspect]
     Indication: DISSEMINATED TUBERCULOSIS
     Dosage: 200MG PER DAY
     Route: 048
     Dates: start: 20130524
  8. VOLTAREN [Suspect]
     Indication: PAIN
     Dosage: 12.5MG AS REQUIRED
     Route: 054
     Dates: start: 201305
  9. PARACETAMOL [Suspect]
     Indication: PAIN
     Dosage: 5ML AS REQUIRED
     Route: 048
     Dates: start: 201302
  10. DIFLUCAN [Suspect]
     Indication: COMBINED IMMUNODEFICIENCY
     Dosage: 2ML PER DAY
     Route: 048
     Dates: start: 201302
  11. PROLEUKIN [Suspect]
     Indication: DISSEMINATED TUBERCULOSIS
     Route: 058
     Dates: start: 20130822
  12. NORMAL IMMUNOGLOBULIN [Concomitant]
     Indication: COMBINED IMMUNODEFICIENCY
     Dates: start: 201302

REACTIONS (7)
  - Respiratory arrest [Fatal]
  - Cardiac arrest [Fatal]
  - Abdominal distension [Unknown]
  - Oedema peripheral [Unknown]
  - Dyskinesia [Unknown]
  - Drug interaction [Unknown]
  - Vomiting [Unknown]
